FAERS Safety Report 5527826-5 (Version None)
Quarter: 2007Q4

REPORT INFORMATION
  Report Type: 
  Country: None (occurrence: None)
  Receive Date: 20071128
  Receipt Date: 20071121
  Transmission Date: 20080405
  Serious: Yes (Other)
  Sender: FDA-Public Use
  Company Number: B0496390A

PATIENT
  Age: 38 Year
  Sex: Female

DRUGS (2)
  1. SEROXAT [Suspect]
     Indication: OBSESSIVE-COMPULSIVE DISORDER
     Dosage: 60MG PER DAY
     Route: 048
  2. TRANQUILLISER [Concomitant]

REACTIONS (6)
  - EATING DISORDER [None]
  - INTENTIONAL SELF-INJURY [None]
  - SCAR [None]
  - SKIN LACERATION [None]
  - SUICIDAL IDEATION [None]
  - WEIGHT INCREASED [None]
